FAERS Safety Report 4737744-8 (Version None)
Quarter: 2005Q3

REPORT INFORMATION
  Report Type: 
  Country: None (occurrence: None)
  Receive Date: 20050802
  Receipt Date: 20050722
  Transmission Date: 20060218
  Serious: Yes (Other)
  Sender: FDA-Public Use
  Company Number: 2005-BP-12474RO

PATIENT
  Age: 68 Year
  Sex: Female

DRUGS (2)
  1. METHOTREXATE [Suspect]
     Indication: RHEUMATOID ARTHRITIS
  2. PREDNISONE [Suspect]
     Indication: RHEUMATOID ARTHRITIS

REACTIONS (13)
  - ANOREXIA [None]
  - ASTHENIA [None]
  - DIASTOLIC DYSFUNCTION [None]
  - HYPOALBUMINAEMIA [None]
  - HYPOXIA [None]
  - LEUKOPENIA [None]
  - LYMPHOPENIA [None]
  - NORMOCHROMIC NORMOCYTIC ANAEMIA [None]
  - OEDEMA PERIPHERAL [None]
  - PITTING OEDEMA [None]
  - PNEUMOCYSTIS JIROVECI PNEUMONIA [None]
  - SPLENIC ABSCESS [None]
  - VENTRICULAR DYSFUNCTION [None]
